FAERS Safety Report 15939733 (Version 2)
Quarter: 2019Q1

REPORT INFORMATION
  Report Type: Spontaneous
  Country: US (occurrence: US)
  Receive Date: 20190208
  Receipt Date: 20190313
  Transmission Date: 20190417
  Serious: Yes (Other)
  Sender: FDA-Public Use
  Company Number: US-ASTRAZENECA-2018SF15040

PATIENT
  Age: 24944 Day
  Sex: Female

DRUGS (22)
  1. FLUCONAZOLE. [Concomitant]
     Active Substance: FLUCONAZOLE
  2. PROAIR HFA [Concomitant]
     Active Substance: ALBUTEROL SULFATE
  3. RANITIDINE. [Concomitant]
     Active Substance: RANITIDINE
  4. SUCRALFATE. [Concomitant]
     Active Substance: SUCRALFATE
  5. PROTONIX [Suspect]
     Active Substance: PANTOPRAZOLE SODIUM
     Route: 065
     Dates: start: 20121101, end: 20160911
  6. AMIODARONE HYDROCHLORIDE. [Concomitant]
     Active Substance: AMIODARONE HYDROCHLORIDE
  7. CLARITHROMYCIN. [Concomitant]
     Active Substance: CLARITHROMYCIN
  8. PRILOSEC [Suspect]
     Active Substance: OMEPRAZOLE MAGNESIUM
     Dosage: 40.0MG UNKNOWN
     Route: 048
     Dates: start: 20121101, end: 20160911
  9. HYDROCODON-APAP [Concomitant]
  10. AZITHROMYCIN ANHYDROUS. [Concomitant]
     Active Substance: AZITHROMYCIN ANHYDROUS
  11. POLYETHYLENE GLYCOL [Concomitant]
     Active Substance: POLYETHYLENE GLYCOLS
  12. METRONIDAZOLE. [Concomitant]
     Active Substance: METRONIDAZOLE
  13. PREVACID [Suspect]
     Active Substance: LANSOPRAZOLE
     Route: 065
     Dates: start: 20121101, end: 20160911
  14. ESZOPICLONE. [Concomitant]
     Active Substance: ESZOPICLONE
  15. PRILOSEC [Suspect]
     Active Substance: OMEPRAZOLE MAGNESIUM
     Route: 048
     Dates: start: 20121101, end: 20160911
  16. SENSIPAR [Concomitant]
     Active Substance: CINACALCET HYDROCHLORIDE
  17. GUAIFENESIN-CODEINE [Concomitant]
  18. AMOXICILLIN. [Concomitant]
     Active Substance: AMOXICILLIN
  19. PHAZYME [Concomitant]
     Active Substance: DIMETHICONE 410
  20. LIDOCAINE. [Concomitant]
     Active Substance: LIDOCAINE
  21. PREDNISONE. [Concomitant]
     Active Substance: PREDNISONE
  22. DEXILANT [Suspect]
     Active Substance: DEXLANSOPRAZOLE
     Route: 065
     Dates: start: 20121101, end: 20160911

REACTIONS (4)
  - Renal failure [Unknown]
  - End stage renal disease [Unknown]
  - Acute kidney injury [Unknown]
  - Nephrogenic anaemia [Unknown]

NARRATIVE: CASE EVENT DATE: 20130701
